FAERS Safety Report 14648259 (Version 2)
Quarter: 2018Q1

REPORT INFORMATION
  Report Type: Spontaneous
  Country: EC (occurrence: EC)
  Receive Date: 20180316
  Receipt Date: 20180321
  Transmission Date: 20180509
  Serious: Yes (Death)
  Sender: FDA-Public Use
  Company Number: EC-ELI_LILLY_AND_COMPANY-EC201803006750

PATIENT
  Age: 63 Year
  Sex: Male

DRUGS (4)
  1. ERBITUX [Suspect]
     Active Substance: CETUXIMAB
     Indication: LARYNGEAL CANCER STAGE III
     Dosage: UNK, UNKNOWN
     Route: 065
     Dates: start: 20140311, end: 20140526
  2. ERBITUX [Suspect]
     Active Substance: CETUXIMAB
     Dosage: UNK, UNKNOWN
     Route: 065
     Dates: start: 20160310, end: 20160720
  3. CISPLATIN. [Concomitant]
     Active Substance: CISPLATIN
     Indication: LARYNGEAL CANCER STAGE III
     Dosage: UNK, UNKNOWN
     Route: 065
     Dates: start: 20160310, end: 20160720
  4. 5-FU                               /00098801/ [Concomitant]
     Active Substance: FLUOROURACIL
     Indication: LARYNGEAL CANCER STAGE III
     Dosage: UNK, UNKNOWN
     Route: 065
     Dates: start: 20160310, end: 20160720

REACTIONS (1)
  - Cerebrovascular accident [Fatal]
